FAERS Safety Report 8616431-X (Version None)
Quarter: 2012Q3

REPORT INFORMATION
  Report Type: 
  Country: None (occurrence: None)
  Receive Date: 20120823
  Receipt Date: 20120807
  Transmission Date: 20120928
  Serious: Yes (Other)
  Sender: FDA-Public Use
  Company Number: CHPA2012BR014846

PATIENT
  Age: 6 Year
  Sex: Male

DRUGS (4)
  1. TOPIRAMATE [Concomitant]
     Dosage: UNK, UNK
  2. NITRAZEPAM [Concomitant]
     Dosage: UNK, UNK
  3. BENEFIBER W/ WHEAT DEXTRIN [Suspect]
     Indication: GASTROINTESTINAL DISORDER
     Dosage: UNK, UNK
     Route: 048
  4. HOMEOPATHIC PREPARATIONS [Concomitant]
     Dosage: UNK, UNK

REACTIONS (6)
  - PAIN [None]
  - PNEUMONIA [None]
  - ABDOMINAL PAIN [None]
  - PYREXIA [None]
  - CRYING [None]
  - ASPIRATION [None]
